FAERS Safety Report 5726134-7 (Version None)
Quarter: 2008Q2

REPORT INFORMATION
  Report Type: 
  Country: None (occurrence: None)
  Receive Date: 20080430
  Receipt Date: 20080415
  Transmission Date: 20081010
  Serious: Yes (Other)
  Sender: FDA-Public Use
  Company Number: 2008S1006384

PATIENT
  Sex: Male

DRUGS (1)
  1. AMNESTEEM [Suspect]

REACTIONS (2)
  - DRY SKIN [None]
  - SUICIDAL IDEATION [None]
